FAERS Safety Report 8052488-5 (Version None)
Quarter: 2012Q1

REPORT INFORMATION
  Report Type: 
  Country: None (occurrence: None)
  Receive Date: 20120117
  Receipt Date: 20120117
  Transmission Date: 20120608
  Serious: No
  Sender: FDA-Public Use
  Company Number: None

PATIENT
  Sex: Male
  Weight: 6.68 kg

DRUGS (2)
  1. SYNAGIS [Suspect]
     Dosage: 106 MG MONTHLY IM : 104 MG MONTHLY IM
     Route: 030
     Dates: start: 20110323, end: 20110401
  2. SYNAGIS [Suspect]
     Dosage: 106 MG MONTHLY IM : 104 MG MONTHLY IM
     Route: 030
     Dates: start: 20111108, end: 20111230

REACTIONS (5)
  - UNRESPONSIVE TO STIMULI [None]
  - HYPOPHAGIA [None]
  - REFUSAL OF TREATMENT BY RELATIVE [None]
  - FLUID INTAKE REDUCED [None]
  - PYREXIA [None]
